FAERS Safety Report 8718465 (Version 2)
Quarter: 2015Q2

REPORT INFORMATION
  Report Type: Report from Study
  Country: US (occurrence: US)
  Receive Date: 20120810
  Receipt Date: 20150624
  Transmission Date: 20150821
  Serious: Yes (Hospitalization)
  Sender: FDA-Public Use
  Company Number: US-ROCHE-1099241

PATIENT
  Age: 62 Year
  Sex: Male

DRUGS (9)
  1. NITROSTAT [Concomitant]
     Active Substance: NITROGLYCERIN
     Route: 065
     Dates: start: 19910530
  2. ACTIVASE [Suspect]
     Active Substance: ALTEPLASE
     Indication: MYOCARDIAL INFARCTION
     Route: 040
     Dates: start: 19910530
  3. SYNTHROID [Concomitant]
     Active Substance: LEVOTHYROXINE SODIUM
  4. HEPARIN [Concomitant]
     Active Substance: HEPARIN SODIUM
     Route: 042
     Dates: start: 19910530
  5. LIDOCAIN [Concomitant]
     Active Substance: LIDOCAINE
     Dosage: 30 CC
     Route: 041
     Dates: start: 19910530
  6. TRIDIL [Concomitant]
     Active Substance: NITROGLYCERIN
     Route: 041
     Dates: start: 19910530
  7. MORPHINE [Concomitant]
     Active Substance: MORPHINE
     Route: 042
  8. ACTIVASE [Suspect]
     Active Substance: ALTEPLASE
     Route: 042
  9. ASPIRIN. [Concomitant]
     Active Substance: ASPIRIN
     Route: 048
     Dates: start: 19910530

REACTIONS (2)
  - Bradycardia [Unknown]
  - Limb discomfort [Unknown]

NARRATIVE: CASE EVENT DATE: 19910530
